FAERS Safety Report 25217234 (Version 2)
Quarter: 2025Q2

REPORT INFORMATION
  Report Type: Spontaneous
  Country: US (occurrence: US)
  Receive Date: 20250419
  Receipt Date: 20250521
  Transmission Date: 20250716
  Serious: No
  Sender: LUPIN
  Company Number: US-LUPIN PHARMACEUTICALS INC.-2025-03095

PATIENT
  Age: 54 Year
  Weight: 68.027 kg

DRUGS (1)
  1. ALBUTEROL SULFATE [Suspect]
     Active Substance: ALBUTEROL SULFATE
     Indication: Smoking cessation therapy

REACTIONS (5)
  - Wheezing [Unknown]
  - Device delivery system issue [Unknown]
  - Drug dose omission by device [Unknown]
  - Off label use [Unknown]
  - Wrong technique in product usage process [Unknown]
